FAERS Safety Report 7048947-4 (Version None)
Quarter: 2010Q4

REPORT INFORMATION
  Report Type: 
  Country: None (occurrence: None)
  Receive Date: 20101008
  Receipt Date: 20100924
  Transmission Date: 20110411
  Serious: Yes (Other)
  Sender: FDA-Public Use
  Company Number: 2010AM003116

PATIENT
  Age: 65 Year
  Sex: Male
  Weight: 103.4201 kg

DRUGS (1)
  1. SYMLIN [Suspect]
     Indication: TYPE 2 DIABETES MELLITUS
     Dosage: 210 MCG; BID; SC
     Route: 058

REACTIONS (3)
  - METASTASES TO BONE [None]
  - METASTASES TO LYMPH NODES [None]
  - PROSTATE CANCER METASTATIC [None]
